FAERS Safety Report 4947159-5 (Version None)
Quarter: 2006Q1

REPORT INFORMATION
  Report Type: 
  Country: None (occurrence: None)
  Receive Date: 20060317
  Receipt Date: 20051226
  Transmission Date: 20060701
  Serious: Yes (Hospitalization, Congenital Anomaly)
  Sender: FDA-Public Use
  Company Number: JP-SANOFI-SYNTHELABO-A01200600047

PATIENT
  Age: 0 Day
  Sex: Female
  Weight: 2.885 kg

DRUGS (8)
  1. MYSLEE [Suspect]
     Indication: DEPRESSION
     Dosage: 10 MG
     Route: 064
     Dates: end: 20050204
  2. MYSLEE [Interacting]
     Indication: NEUROSIS
     Dosage: 10 MG
     Route: 064
     Dates: end: 20050204
  3. LUVOX [Interacting]
     Indication: DEPRESSION
     Dosage: 12.5 MG
     Route: 064
     Dates: end: 20050204
  4. LUVOX [Interacting]
     Indication: NEUROSIS
     Dosage: 12.5 MG
     Route: 064
     Dates: end: 20050204
  5. LEXOTAN [Interacting]
     Indication: NEUROSIS
     Dosage: 4 MG
     Route: 064
     Dates: end: 20050204
  6. LEXOTAN [Interacting]
     Indication: DEPRESSION
     Dosage: 4 MG
     Route: 064
     Dates: end: 20050204
  7. LORAZEPAM [Interacting]
     Indication: DEPRESSION
     Dosage: 0.5 MG
     Route: 064
     Dates: end: 20050204
  8. LORAZEPAM [Interacting]
     Indication: NEUROSIS
     Dosage: 0.5 MG
     Route: 064
     Dates: end: 20050204

REACTIONS (10)
  - DEVELOPMENTAL DELAY [None]
  - DRUG EXPOSURE DURING PREGNANCY [None]
  - DRUG INTERACTION [None]
  - DRUG WITHDRAWAL SYNDROME NEONATAL [None]
  - HYPOTONIA [None]
  - HYPOTONIA NEONATAL [None]
  - NEONATAL TACHYPNOEA [None]
  - POOR SUCKING REFLEX [None]
  - TACHYPNOEA [None]
  - TREMOR [None]
